FAERS Safety Report 11867762 (Version 1)
Quarter: 2015Q4

REPORT INFORMATION
  Report Type: Spontaneous
  Country: US (occurrence: None)
  Receive Date: 20151223
  Receipt Date: 20151223
  Transmission Date: 20160305
  Serious: No
  Sender: FDA-Public Use
  Company Number: None

PATIENT
  Age: 53 Year
  Sex: Male
  Weight: 90.72 kg

DRUGS (4)
  1. VITAMIN D [Concomitant]
     Active Substance: CHOLECALCIFEROL
  2. SIMVASTATIN 10MG GENERIC [Suspect]
     Active Substance: SIMVASTATIN
     Indication: BLOOD CHOLESTEROL INCREASED
     Route: 048
     Dates: start: 20150301, end: 20150930
  3. FISH OIL [Concomitant]
     Active Substance: FISH OIL
  4. BABY ASPIRIN [Concomitant]
     Active Substance: ASPIRIN

REACTIONS (5)
  - Memory impairment [None]
  - Feeling abnormal [None]
  - Confusional state [None]
  - Impaired work ability [None]
  - Disturbance in attention [None]

NARRATIVE: CASE EVENT DATE: 20150801
